FAERS Safety Report 10484228 (Version 1)
Quarter: 2014Q3

REPORT INFORMATION
  Report Type: Spontaneous
  Country: US (occurrence: None)
  Receive Date: 20140926
  Receipt Date: 20140926
  Transmission Date: 20150326
  Serious: Yes (Hospitalization, Other)
  Sender: FDA-Public Use
  Company Number: ADR-2014-01734

PATIENT
  Sex: Female

DRUGS (3)
  1. BACLOFEN INTRATHECAL [Suspect]
     Active Substance: BACLOFEN
     Indication: PAIN
  2. BUPIVACAINE INTRATHECAL [Suspect]
     Active Substance: BUPIVACAINE
  3. DILAUDID [Suspect]
     Active Substance: HYDROMORPHONE HYDROCHLORIDE

REACTIONS (19)
  - Hyperhidrosis [None]
  - Lung disorder [None]
  - Spinal pain [None]
  - No therapeutic response [None]
  - Device issue [None]
  - Implant site reaction [None]
  - Seroma [None]
  - Pain [None]
  - Hot flush [None]
  - Incorrect route of drug administration [None]
  - Feeling abnormal [None]
  - Injection site pain [None]
  - Burning sensation [None]
  - Underdose [None]
  - Device leakage [None]
  - Drug withdrawal syndrome [None]
  - Night sweats [None]
  - Device breakage [None]
  - Device dislocation [None]
